FAERS Safety Report 18093031 (Version 2)
Quarter: 2020Q3

REPORT INFORMATION
  Report Type: Not Available
  Country: US (occurrence: US)
  Receive Date: 20200730
  Receipt Date: 20200826
  Transmission Date: 20201103
  Serious: No
  Sender: FDA-Public Use
  Company Number: US-NEUROCRINE BIOSCIENCES INC.-2020NBI02544

PATIENT
  Age: 20 Year
  Sex: Male

DRUGS (7)
  1. BENZOTROPINE [Concomitant]
     Active Substance: BENZTROPINE
  2. INGREZZA [Suspect]
     Active Substance: VALBENAZINE
     Indication: TARDIVE DYSKINESIA
     Route: 048
     Dates: start: 20200601, end: 20200701
  3. VENLAFAXINE [Concomitant]
     Active Substance: VENLAFAXINE HYDROCHLORIDE
  4. ABILIFY [Concomitant]
     Active Substance: ARIPIPRAZOLE
  5. MELOXICAM. [Concomitant]
     Active Substance: MELOXICAM
  6. SUMATRIPTAN. [Concomitant]
     Active Substance: SUMATRIPTAN
  7. VITAMIN B [Concomitant]
     Active Substance: VITAMIN B

REACTIONS (2)
  - Tremor [Recovered/Resolved]
  - Muscle tightness [Unknown]

NARRATIVE: CASE EVENT DATE: 2020
